FAERS Safety Report 9224934 (Version 2)
Quarter: 2013Q2

REPORT INFORMATION
  Report Type: Report from Study
  Country: DE (occurrence: DE)
  Receive Date: 20130411
  Receipt Date: 20130521
  Transmission Date: 20140414
  Serious: Yes (Hospitalization)
  Sender: FDA-Public Use
  Company Number: DE-B.I. PHARMACEUTICALS,INC./RIDGEFIELD-2013-DE-01034DE

PATIENT
  Age: 63 Year
  Sex: Male
  Weight: 110 kg

DRUGS (8)
  1. PRADAXA [Suspect]
     Indication: ATRIAL FIBRILLATION
     Dosage: 300 MG
     Route: 048
     Dates: start: 201111, end: 20120316
  2. AMIODARONE [Concomitant]
     Dosage: 600 NR
     Route: 048
     Dates: start: 201203
  3. BISOPROLOL [Concomitant]
     Dosage: 10/25
     Route: 048
     Dates: start: 200510
  4. ENALAPRIL [Concomitant]
     Dosage: 20 NR
     Route: 048
     Dates: start: 200310
  5. ATACAND [Concomitant]
     Dosage: 32 NR
     Route: 048
     Dates: start: 200705
  6. AMLODIPINE [Concomitant]
  7. SIMVASTATIN [Concomitant]
  8. CANDESARTAN [Concomitant]

REACTIONS (4)
  - Gastrointestinal haemorrhage [Recovered/Resolved]
  - Gastritis [Recovered/Resolved]
  - Coronary artery disease [Recovered/Resolved]
  - Cardiac failure [Recovered/Resolved]
